FAERS Safety Report 6525671-5 (Version None)
Quarter: 2010Q1

REPORT INFORMATION
  Report Type: 
  Country: None (occurrence: None)
  Receive Date: 20100104
  Receipt Date: 20091229
  Transmission Date: 20100710
  Serious: Yes (Hospitalization, Other)
  Sender: FDA-Public Use
  Company Number: US-BRISTOL-MYERS SQUIBB COMPANY-14916407

PATIENT
  Age: 53 Year
  Sex: Male
  Weight: 84 kg

DRUGS (2)
  1. WARFARIN SODIUM [Suspect]
     Dates: start: 20070101
  2. CELEBREX [Suspect]
     Indication: JOINT STIFFNESS
     Dosage: DOSE INCREASED TO 200MG DAILY ON ALTERNATE DAYS

REACTIONS (3)
  - FLUID RETENTION [None]
  - HAEMORRHAGE [None]
  - HEART VALVE REPLACEMENT [None]
